FAERS Safety Report 9353489 (Version 1)
Quarter: 2013Q2

REPORT INFORMATION
  Report Type: Spontaneous
  Country: JP (occurrence: JP)
  Receive Date: 20130618
  Receipt Date: 20130618
  Transmission Date: 20140414
  Serious: Yes (Life-Threatening)
  Sender: FDA-Public Use
  Company Number: JP-ASTRAZENECA-2013SE42482

PATIENT
  Age: 18 Year
  Sex: Male
  Weight: 53 kg

DRUGS (1)
  1. MARCAIN SPINAL [Suspect]
     Indication: SPINAL ANAESTHESIA
     Route: 029

REACTIONS (1)
  - Cardiac arrest [Recovered/Resolved]
